FAERS Safety Report 7432980-4 (Version None)
Quarter: 2011Q2

REPORT INFORMATION
  Report Type: 
  Country: None (occurrence: None)
  Receive Date: 20110422
  Receipt Date: 20110413
  Transmission Date: 20111010
  Serious: Yes (Hospitalization)
  Sender: FDA-Public Use
  Company Number: US-ASTRAZENECA-2010SE55369

PATIENT
  Age: 59 Year
  Sex: Male

DRUGS (4)
  1. CLONAZEPAM [Concomitant]
  2. SEROQUEL [Suspect]
     Route: 048
  3. SEROQUEL [Suspect]
     Route: 048
     Dates: start: 20050101
  4. SEROQUEL [Suspect]
     Indication: SCHIZOPHRENIA, PARANOID TYPE
     Route: 048

REACTIONS (7)
  - DIZZINESS [None]
  - SCHIZOPHRENIA, PARANOID TYPE [None]
  - DIARRHOEA [None]
  - DRUG INEFFECTIVE [None]
  - HOSPITALISATION [None]
  - POLLAKIURIA [None]
  - ABDOMINAL PAIN UPPER [None]
